FAERS Safety Report 9249524 (Version 2)
Quarter: 2013Q2

REPORT INFORMATION
  Report Type: Spontaneous
  Country: US (occurrence: US)
  Receive Date: 20130423
  Receipt Date: 20130508
  Transmission Date: 20140414
  Serious: No
  Sender: FDA-Public Use
  Company Number: US-VERTEX PHARMACEUTICALS INC.-2013-005261

PATIENT
  Age: 43 Year
  Sex: Female

DRUGS (3)
  1. INCIVEK [Suspect]
     Indication: HEPATITIS C
     Dosage: 750 MG, TID
     Route: 048
     Dates: start: 20130412
  2. RIBASPHERE [Suspect]
     Indication: HEPATITIS C
     Dosage: 400MG AM, 600MG PM
     Route: 048
     Dates: start: 20130412
  3. PEGASYS [Suspect]
     Indication: HEPATITIS C
     Dosage: 180 ?G, QW
     Route: 058
     Dates: start: 20130412

REACTIONS (4)
  - Injection site erythema [Not Recovered/Not Resolved]
  - Rash vesicular [Unknown]
  - Skin burning sensation [Unknown]
  - Pruritus [Unknown]
